FAERS Safety Report 17057283 (Version 2)
Quarter: 2019Q4

REPORT INFORMATION
  Report Type: Spontaneous
  Country: IL (occurrence: IL)
  Receive Date: 20191121
  Receipt Date: 20191218
  Transmission Date: 20200122
  Serious: Yes (Hospitalization, Other)
  Sender: FDA-Public Use
  Company Number: IL-TEVA-2019-IL-1140037

PATIENT
  Age: 21 Year
  Sex: Female

DRUGS (2)
  1. VALPROIC ACID. [Suspect]
     Active Substance: VALPROIC ACID
     Route: 051
  2. VALPROIC ACID. [Suspect]
     Active Substance: VALPROIC ACID
     Indication: EPILEPSY
     Dosage: ADMINISTERED THROUGH FEEDING JEJUNOSTOMY
     Route: 050

REACTIONS (5)
  - Drug level decreased [Not Recovered/Not Resolved]
  - Jejunostomy [Unknown]
  - Blood albumin decreased [Unknown]
  - Epilepsy [Unknown]
  - Seizure [Unknown]
